FAERS Safety Report 10794608 (Version 1)
Quarter: 2015Q1

REPORT INFORMATION
  Report Type: Spontaneous
  Country: US (occurrence: US)
  Receive Date: 20150213
  Receipt Date: 20150213
  Transmission Date: 20150721
  Serious: Yes (Death, Hospitalization, Other)
  Sender: FDA-Public Use
  Company Number: US-TEVA-532989USA

PATIENT
  Age: 52 Year
  Sex: Female

DRUGS (1)
  1. PACLITAXEL. [Suspect]
     Active Substance: PACLITAXEL
     Indication: BREAST CANCER STAGE II
     Dosage: 100 MG/16.7 ML
     Route: 041
     Dates: start: 20150102

REACTIONS (4)
  - Loss of consciousness [Not Recovered/Not Resolved]
  - Pain [Unknown]
  - Cardio-respiratory arrest [Fatal]
  - Anaphylactic shock [Fatal]

NARRATIVE: CASE EVENT DATE: 201501
